FAERS Safety Report 6498072-6 (Version None)
Quarter: 2009Q4

REPORT INFORMATION
  Report Type: 
  Country: None (occurrence: None)
  Receive Date: 20091125
  Receipt Date: 20090114
  Transmission Date: 20100525
  Serious: Yes (Hospitalization)
  Sender: FDA-Public Use
  Company Number: 2009BH001071

PATIENT
  Age: 47 Year
  Sex: Male

DRUGS (12)
  1. DIANEAL [Suspect]
     Indication: PERITONEAL DIALYSIS
     Dosage: IP
     Route: 033
     Dates: start: 20080301, end: 20081201
  2. DIANEAL PD-2 W/ DEXTROSE 1.5% [Suspect]
     Indication: PERITONEAL DIALYSIS
     Dosage: IP
     Route: 033
     Dates: start: 20080301, end: 20081201
  3. METOPROLOL [Concomitant]
  4. DIGOXIN [Concomitant]
  5. COENZYME Q10 [Concomitant]
  6. L-CARNITINE [Concomitant]
  7. VITAMIN D [Concomitant]
  8. EPOGEN [Concomitant]
  9. COUMADIN [Concomitant]
  10. TUMS [Concomitant]
  11. PHOSLO [Concomitant]
  12. FOSRENOL [Concomitant]

REACTIONS (1)
  - PERITONITIS BACTERIAL [None]
